FAERS Safety Report 24707590 (Version 2)
Quarter: 2025Q1

REPORT INFORMATION
  Report Type: Spontaneous
  Country: JP (occurrence: JP)
  Receive Date: 20241206
  Receipt Date: 20250130
  Transmission Date: 20250408
  Serious: Yes (Life-Threatening, Hospitalization, Other)
  Sender: MERCK
  Company Number: JP-MSD-M2024-50904

PATIENT
  Age: 76 Year
  Sex: Male

DRUGS (3)
  1. KEYTRUDA [Suspect]
     Active Substance: PEMBROLIZUMAB
     Indication: Non-small cell lung cancer stage III
     Dosage: 200 MILLIGRAM, Q3W
     Route: 041
     Dates: start: 20241111, end: 20241202
  2. CISPLATIN [Suspect]
     Active Substance: CISPLATIN
     Indication: Non-small cell lung cancer stage III
     Dosage: 75 MILLIGRAM/KILOGRAM, Q3W
     Route: 041
     Dates: start: 20241111, end: 20241209
  3. PEMETREXED DISODIUM HEMIPENTAHYDRATE [Suspect]
     Active Substance: PEMETREXED DISODIUM HEMIPENTAHYDRATE
     Indication: Non-small cell lung cancer stage III
     Dosage: 500 MILLIGRAM/SQ. METER, Q3W
     Route: 041
     Dates: start: 20241111, end: 20241209

REACTIONS (3)
  - Myocardial infarction [Not Recovered/Not Resolved]
  - Renal impairment [Not Recovered/Not Resolved]
  - Hepatitis fulminant [Not Recovered/Not Resolved]

NARRATIVE: CASE EVENT DATE: 20241101
